FAERS Safety Report 6718193-X (Version None)
Quarter: 2010Q2

REPORT INFORMATION
  Report Type: 
  Country: None (occurrence: None)
  Receive Date: 20100504
  Receipt Date: 20100415
  Transmission Date: 20101027
  Serious: Yes (Other)
  Sender: FDA-Public Use
  Company Number: 7001534

PATIENT
  Age: 44 Year
  Sex: Female

DRUGS (3)
  1. REBIF [Suspect]
     Indication: DRUG USE FOR UNKNOWN INDICATION
     Dosage: 44 MCG, 3 IN WK, SUBCUTANEOUS
     Route: 058
     Dates: start: 20090714
  2. NUVIGIL [Suspect]
     Dates: start: 20100414, end: 20100415
  3. CYMBALTA [Concomitant]

REACTIONS (3)
  - CRYING [None]
  - DEPRESSED MOOD [None]
  - SELF-INJURIOUS IDEATION [None]
